FAERS Safety Report 4416944-0 (Version None)
Quarter: 2004Q3

REPORT INFORMATION
  Report Type: 
  Country: None (occurrence: None)
  Receive Date: 20040802
  Receipt Date: 20040720
  Transmission Date: 20050211
  Serious: Yes (Other)
  Sender: FDA-Public Use
  Company Number: HQWYE367422JUL04

PATIENT
  Age: 59 Year
  Sex: Male

DRUGS (2)
  1. CORDARONE [Suspect]
     Indication: ATRIAL FIBRILLATION
  2. CORDARONE [Suspect]
     Indication: ATRIAL FIBRILLATION

REACTIONS (7)
  - ATRIAL FIBRILLATION [None]
  - CARDIAC FAILURE [None]
  - CONDITION AGGRAVATED [None]
  - HEPATOTOXICITY [None]
  - HYPERTHYROIDISM [None]
  - INTERLEUKIN LEVEL INCREASED [None]
  - PAPILLARY THYROID CANCER [None]
